FAERS Safety Report 17849287 (Version 1)
Quarter: 2020Q2

REPORT INFORMATION
  Report Type: Spontaneous
  Country: US (occurrence: US)
  Receive Date: 20200601
  Receipt Date: 20200601
  Transmission Date: 20200714
  Serious: Yes (Death, Other)
  Sender: FDA-Public Use
  Company Number: None

PATIENT
  Age: 64 Year
  Sex: Male
  Weight: 146 kg

DRUGS (2)
  1. CONVALESCENT PLASMA [Concomitant]
     Active Substance: HUMAN PLASMA
     Dates: start: 20200518, end: 20200518
  2. REMDESIVIR. [Suspect]
     Active Substance: REMDESIVIR
     Indication: COVID-19
     Route: 042
     Dates: start: 20200516, end: 20200520

REACTIONS (7)
  - Hypoxia [None]
  - Acute respiratory distress syndrome [None]
  - Pneumonia staphylococcal [None]
  - Pyrexia [None]
  - Acute kidney injury [None]
  - Myalgia [None]
  - Disease progression [None]

NARRATIVE: CASE EVENT DATE: 20200527
